FAERS Safety Report 4369658-X (Version None)
Quarter: 2004Q2

REPORT INFORMATION
  Report Type: 
  Country: None (occurrence: None)
  Receive Date: 20040603
  Receipt Date: 20040526
  Transmission Date: 20050107
  Serious: Yes (Other)
  Sender: FDA-Public Use
  Company Number: US-BRISTOL-MYERS SQUIBB COMPANY-12598264

PATIENT
  Sex: Female

DRUGS (9)
  1. ESTRACE [Suspect]
     Indication: HORMONE REPLACEMENT THERAPY
  2. ESTRATAB [Suspect]
     Indication: HORMONE REPLACEMENT THERAPY
  3. ESTROPIPATE [Suspect]
     Indication: HORMONE REPLACEMENT THERAPY
  4. VIVELLE [Suspect]
     Indication: HORMONE REPLACEMENT THERAPY
  5. PREMPRO [Suspect]
     Indication: HORMONE REPLACEMENT THERAPY
  6. PREMARIN [Suspect]
     Indication: HORMONE REPLACEMENT THERAPY
  7. PROVERA [Suspect]
     Indication: HORMONE REPLACEMENT THERAPY
  8. ESTROGEN [Suspect]
     Indication: HORMONE REPLACEMENT THERAPY
  9. MEDROXYPROGESTERONE ACETATE [Suspect]
     Indication: HORMONE REPLACEMENT THERAPY

REACTIONS (1)
  - BREAST CANCER [None]
